FAERS Safety Report 13767719 (Version 1)
Quarter: 2017Q3

REPORT INFORMATION
  Report Type: Report from Study
  Country: US (occurrence: US)
  Receive Date: 20170719
  Receipt Date: 20170719
  Transmission Date: 20171127
  Serious: Yes (Hospitalization)
  Sender: FDA-Public Use
  Company Number: US-ROCHE-1564864

PATIENT
  Age: 67 Year
  Sex: Female
  Weight: 61.8 kg

DRUGS (17)
  1. NITROFURANTOIN. [Concomitant]
     Active Substance: NITROFURANTOIN
     Indication: URINARY TRACT INFECTION
     Route: 048
     Dates: start: 20141007, end: 20141016
  2. DENOSUMAB [Concomitant]
     Active Substance: DENOSUMAB
     Indication: PROPHYLAXIS
     Route: 058
     Dates: start: 20140910
  3. BACITRACIN. [Concomitant]
     Active Substance: BACITRACIN
     Indication: INFECTION PROPHYLAXIS
     Dosage: 500 (OTHER)
     Route: 061
     Dates: start: 20141015, end: 20141015
  4. NAB-PACLITAXEL [Suspect]
     Active Substance: PACLITAXEL
     Indication: NEOPLASM
     Dosage: DATE OF MOST RECENT DOSE (175 UNIT NOT REPORTED)) PRIOR TO EVENT: 17/OCT/2014
     Route: 042
     Dates: start: 20141003
  5. SODIUM CHLORIDE. [Concomitant]
     Active Substance: SODIUM CHLORIDE
     Route: 042
     Dates: start: 20141003, end: 20150508
  6. VITAMIN D3 [Concomitant]
     Active Substance: CHOLECALCIFEROL
     Route: 048
     Dates: start: 2011
  7. BIMATOPROST. [Concomitant]
     Active Substance: BIMATOPROST
     Indication: GLAUCOMA
     Dosage: 1 OTHER
     Route: 047
     Dates: start: 2009
  8. ZOLPIDEM [Concomitant]
     Active Substance: ZOLPIDEM\ZOLPIDEM TARTRATE
     Indication: INSOMNIA
     Route: 048
     Dates: start: 20140728
  9. EPINEPHRINE/LIDOCAINE [Concomitant]
     Active Substance: EPINEPHRINE\LIDOCAINE
     Indication: ANAESTHESIA
     Route: 050
     Dates: start: 20141015, end: 20141015
  10. CYCLOSPORINE OPHTHALMIC EMULSION [Concomitant]
     Indication: DRY EYE
     Route: 047
     Dates: start: 2009
  11. FLU VACCINE [Concomitant]
     Active Substance: INFLUENZA VIRUS VACCINE
     Indication: INFLUENZA
     Route: 030
     Dates: start: 20141010, end: 20141010
  12. KEFLEX [Concomitant]
     Active Substance: CEPHALEXIN
     Indication: PYREXIA
     Route: 048
     Dates: start: 20141024, end: 20141028
  13. ATEZOLIZUMAB. [Suspect]
     Active Substance: ATEZOLIZUMAB
     Indication: NEOPLASM
     Dosage: DATE OF MOST RECENT DOSE (800 MG) PRIOR TO EVENT: 17/OCT/2014?FIXED DOSE PER PROTOCOL?CYCLE 2 ON 04/
     Route: 042
     Dates: start: 20141017
  14. CIPROFLOXACIN. [Concomitant]
     Active Substance: CIPROFLOXACIN
     Indication: URINARY TRACT INFECTION
     Route: 048
     Dates: start: 20141009, end: 20141016
  15. PYRIDIUM [Concomitant]
     Active Substance: PHENAZOPYRIDINE
     Indication: URINARY TRACT INFECTION
     Route: 048
     Dates: start: 20141007, end: 20141016
  16. ADVAIR HFA [Concomitant]
     Active Substance: FLUTICASONE PROPIONATE\SALMETEROL XINAFOATE
     Indication: ASTHMA
     Route: 055
     Dates: start: 20140114
  17. LIDOCAINE. [Concomitant]
     Active Substance: LIDOCAINE
     Indication: ANAESTHESIA
     Route: 061
     Dates: start: 20141015, end: 20141015

REACTIONS (1)
  - Pneumonia mycoplasmal [Recovered/Resolved]

NARRATIVE: CASE EVENT DATE: 20141028
